FAERS Safety Report 13571366 (Version 1)
Quarter: 2017Q2

REPORT INFORMATION
  Report Type: Report from Study
  Country: None (occurrence: DE)
  Receive Date: 20170523
  Receipt Date: 20170523
  Transmission Date: 20170830
  Serious: Yes (Hospitalization)
  Sender: FDA-Public Use
  Company Number: DE-ABBVIE-17K-062-1975535-00

PATIENT
  Age: 77 Year
  Sex: Female

DRUGS (1)
  1. DUODOPA [Suspect]
     Active Substance: CARBIDOPA\LEVODOPA
     Indication: PARKINSON^S DISEASE
     Dosage: MD 4.5 ML; CRD 1.7 ML/H; ED 0.5 ML
     Route: 050
     Dates: start: 20160818

REACTIONS (2)
  - C-reactive protein increased [Unknown]
  - Infection [Unknown]

NARRATIVE: CASE EVENT DATE: 20170511
